FAERS Safety Report 12792706 (Version 1)
Quarter: 2016Q3

REPORT INFORMATION
  Report Type: Spontaneous
  Country: HU (occurrence: HU)
  Receive Date: 20160929
  Receipt Date: 20160929
  Transmission Date: 20161109
  Serious: Yes (Other)
  Sender: FDA-Public Use
  Company Number: HU-SYMPLMED PHARMACEUTICALS-2016SYMPLMED000324

PATIENT

DRUGS (1)
  1. COVEREX-AS [Suspect]
     Active Substance: PERINDOPRIL ARGININE
     Indication: PRODUCT USED FOR UNKNOWN INDICATION
     Dosage: UNK
     Route: 065
     Dates: start: 201411, end: 2016

REACTIONS (4)
  - Diarrhoea [Unknown]
  - Swelling face [Unknown]
  - Local swelling [Unknown]
  - Pharyngitis [Unknown]

NARRATIVE: CASE EVENT DATE: 2016
